FAERS Safety Report 8170127 (Version 3)
Quarter: 2013Q3

REPORT INFORMATION
  Report Type: Spontaneous
  Country: US (occurrence: US)
  Receive Date: 20111005
  Receipt Date: 20130823
  Transmission Date: 20140515
  Serious: Yes (Other)
  Sender: FDA-Public Use
  Company Number: US-ASTRAZENECA-2011SE57934

PATIENT
  Age: 72 Year
  Sex: Female
  Weight: 77.1 kg

DRUGS (9)
  1. NEXIUM [Suspect]
     Indication: GASTROOESOPHAGEAL REFLUX DISEASE
     Route: 048
     Dates: start: 1998
  2. NEXIUM [Suspect]
     Indication: HIATUS HERNIA
     Route: 048
     Dates: start: 1998
  3. NEXIUM [Suspect]
     Indication: OESOPHAGEAL ULCER
     Route: 048
     Dates: start: 1998
  4. NEXIUM [Suspect]
     Indication: GASTROOESOPHAGEAL REFLUX DISEASE
     Route: 048
     Dates: start: 20130815
  5. NEXIUM [Suspect]
     Indication: HIATUS HERNIA
     Route: 048
     Dates: start: 20130815
  6. NEXIUM [Suspect]
     Indication: OESOPHAGEAL ULCER
     Route: 048
     Dates: start: 20130815
  7. TRAVATAN [Suspect]
     Indication: GLAUCOMA
  8. XALATAN [Concomitant]
     Indication: GLAUCOMA
     Dates: start: 201302
  9. XALATAN [Concomitant]
     Indication: CATARACT
     Dates: start: 201302

REACTIONS (22)
  - Nasal cavity cancer [Unknown]
  - Gastric ulcer [Unknown]
  - Anxiety [Unknown]
  - Influenza [Unknown]
  - Mood swings [Recovering/Resolving]
  - Dyspnoea [Recovering/Resolving]
  - Dry eye [Recovering/Resolving]
  - Fatigue [Recovering/Resolving]
  - Asthenia [Recovering/Resolving]
  - Activities of daily living impaired [Recovering/Resolving]
  - Irritability [Recovering/Resolving]
  - Fear [Unknown]
  - Abdominal distension [Unknown]
  - Glaucoma [Unknown]
  - Cataract [Unknown]
  - Mental status changes [Unknown]
  - Muscular weakness [Unknown]
  - Depression [Recovering/Resolving]
  - Constipation [Recovering/Resolving]
  - Confusional state [Recovering/Resolving]
  - Diarrhoea [Unknown]
  - Somnolence [Unknown]
